FAERS Safety Report 4630924-1 (Version None)
Quarter: 2005Q2

REPORT INFORMATION
  Report Type: 
  Country: None (occurrence: None)
  Receive Date: 20050407
  Receipt Date: 20050407
  Transmission Date: 20051028
  Serious: Yes (Death)
  Sender: FDA-Public Use
  Company Number: None

PATIENT
  Age: 62 Year
  Sex: Female
  Weight: 51 kg

DRUGS (2)
  1. TACROLIMUS [Suspect]
     Indication: GRAFT VERSUS HOST DISEASE
     Dosage: 1.5MG IV OVER 24 HRS
     Route: 042
     Dates: start: 20040124, end: 20040126
  2. TACROLIMUS [Suspect]
     Indication: PROPHYLAXIS
     Dosage: 1.5MG IV OVER 24 HRS
     Route: 042
     Dates: start: 20040124, end: 20040126

REACTIONS (5)
  - CONVULSION [None]
  - DRUG TOXICITY [None]
  - ENCEPHALOPATHY [None]
  - MENTAL STATUS CHANGES [None]
  - NUCLEAR MAGNETIC RESONANCE IMAGING BRAIN ABNORMAL [None]
